FAERS Safety Report 10208677 (Version 1)
Quarter: 2014Q2

REPORT INFORMATION
  Report Type: Spontaneous
  Country: US (occurrence: US)
  Receive Date: 20140530
  Receipt Date: 20140530
  Transmission Date: 20141212
  Serious: No
  Sender: FDA-Public Use
  Company Number: US-LUNDBECK-DKLU1099709

PATIENT
  Age: 37 Year
  Sex: Male

DRUGS (1)
  1. SABRIL     (TABLET) [Suspect]
     Indication: TEMPORAL LOBE EPILEPSY
     Route: 048
     Dates: start: 20130501, end: 20140501

REACTIONS (1)
  - Drug ineffective [Unknown]
